FAERS Safety Report 5295073-0 (Version None)
Quarter: 2007Q2

REPORT INFORMATION
  Report Type: 
  Country: None (occurrence: None)
  Receive Date: 20070412
  Receipt Date: 20070404
  Transmission Date: 20071010
  Serious: Yes (Hospitalization)
  Sender: FDA-Public Use
  Company Number: DE-BRISTOL-MYERS SQUIBB COMPANY-13745161

PATIENT
  Sex: Female

DRUGS (12)
  1. ERBITUX [Suspect]
     Indication: COLON CANCER METASTATIC
     Route: 042
     Dates: start: 20070328, end: 20070328
  2. IRINOTECAN HCL [Suspect]
     Indication: COLON CANCER METASTATIC
     Dates: start: 20070328, end: 20070328
  3. FLUOROURACIL [Concomitant]
     Indication: COLON CANCER METASTATIC
  4. THIAMAZOLE [Concomitant]
     Route: 048
  5. PANTOZOL [Concomitant]
     Route: 048
  6. RAMIPRIL [Concomitant]
     Route: 048
  7. NEBILET [Concomitant]
     Route: 048
  8. VITAMIN B6 [Concomitant]
  9. CALCIUM CARBONATE + COLECALCIFEROL [Concomitant]
  10. PREDNISOLONE [Concomitant]
     Route: 048
  11. SEREVENT [Concomitant]
  12. BECLOMETHASONE DIPROPIONATE [Concomitant]

REACTIONS (5)
  - CYANOSIS [None]
  - DYSPNOEA [None]
  - HYPERTENSION [None]
  - TACHYCARDIA [None]
  - THROMBOCYTOPENIA [None]
